FAERS Safety Report 7750931-X (Version None)
Quarter: 2011Q3

REPORT INFORMATION
  Report Type: 
  Country: None (occurrence: None)
  Receive Date: 20110914
  Receipt Date: 20110909
  Transmission Date: 20111222
  Serious: Yes (Hospitalization)
  Sender: FDA-Public Use
  Company Number: US-VERTEX PHARMACEUTICALS INC.-AE-2011-001442

PATIENT

DRUGS (2)
  1. INCIVEK [Suspect]
     Indication: HEPATITIS C
     Dates: start: 20110714, end: 20110818
  2. RIBAVIRIN [Concomitant]
     Indication: HEPATITIS C
     Dates: end: 20110818

REACTIONS (1)
  - PANCYTOPENIA [None]
